FAERS Safety Report 23266422 (Version 2)
Quarter: 2023Q4

REPORT INFORMATION
  Report Type: Report from Study
  Country: CN (occurrence: CN)
  Receive Date: 20231206
  Receipt Date: 20231213
  Transmission Date: 20240110
  Serious: Yes (Hospitalization)
  Sender: FDA-Public Use
  Company Number: CN-Eisai-EC-2023-154293

PATIENT
  Age: 44 Year
  Sex: Male
  Weight: 53 kg

DRUGS (3)
  1. LENVATINIB [Suspect]
     Active Substance: LENVATINIB
     Indication: Hepatocellular carcinoma
     Route: 048
     Dates: start: 20220211, end: 20220215
  2. TORIPALIMAB [Suspect]
     Active Substance: TORIPALIMAB
     Indication: Hepatocellular carcinoma
     Route: 042
     Dates: start: 20220211, end: 20220211
  3. ENTECAVIR [Concomitant]
     Active Substance: ENTECAVIR
     Indication: Chronic hepatitis B
     Route: 048
     Dates: start: 20211020

REACTIONS (1)
  - Hepatic function abnormal [Recovering/Resolving]

NARRATIVE: CASE EVENT DATE: 20220215
